FAERS Safety Report 9261225 (Version 1)
Quarter: 2013Q2

REPORT INFORMATION
  Report Type: Spontaneous
  Country: IT (occurrence: IT)
  Receive Date: 20130429
  Receipt Date: 20130429
  Transmission Date: 20140414
  Serious: Yes (Hospitalization)
  Sender: FDA-Public Use
  Company Number: PHHY2013IT041074

PATIENT
  Sex: Female

DRUGS (2)
  1. VOLTAREN [Suspect]
     Dosage: UNK UKN, UNK
     Dates: start: 20111101, end: 20111103
  2. FASTUM [Suspect]
     Dosage: UNK UKN, UNK
     Route: 061
     Dates: start: 20111102, end: 20111103

REACTIONS (2)
  - Poisoning [Unknown]
  - Rash [Unknown]
